FAERS Safety Report 9799854 (Version 3)
Quarter: 2014Q3

REPORT INFORMATION
  Report Type: Spontaneous
  Country: US (occurrence: US)
  Receive Date: 20140106
  Receipt Date: 20140820
  Transmission Date: 20150326
  Serious: Yes (Hospitalization, Other)
  Sender: FDA-Public Use
  Company Number: US-009507513-1401USA000813

PATIENT
  Sex: Female

DRUGS (3)
  1. IMITREX [Concomitant]
     Active Substance: SUMATRIPTAN\SUMATRIPTAN SUCCINATE
     Indication: MIGRAINE
     Dosage: UNK, PRN
  2. IBUPROFEN. [Concomitant]
     Active Substance: IBUPROFEN
     Dosage: UNK, PRN
  3. NUVARING [Suspect]
     Active Substance: ETHINYL ESTRADIOL\ETONOGESTREL
     Indication: CONTRACEPTION
     Dosage: UNK
     Route: 067
     Dates: start: 20080714, end: 20091017

REACTIONS (1)
  - Cerebrovascular accident [Unknown]

NARRATIVE: CASE EVENT DATE: 20091017
